FAERS Safety Report 8612861-0 (Version None)
Quarter: 2012Q3

REPORT INFORMATION
  Report Type: 
  Country: None (occurrence: None)
  Receive Date: 20120822
  Receipt Date: 20120424
  Transmission Date: 20120928
  Serious: No
  Sender: FDA-Public Use
  Company Number: US-ASTRAZENECA-2011SE36649

PATIENT
  Age: 60 Year
  Sex: Male
  Weight: 79.4 kg

DRUGS (2)
  1. PROAIR/VENTOLIN [Concomitant]
  2. SYMBICORT [Suspect]
     Route: 055

REACTIONS (2)
  - INTENTIONAL DRUG MISUSE [None]
  - ASTHMA [None]
